FAERS Safety Report 16486236 (Version 1)
Quarter: 2019Q2

REPORT INFORMATION
  Report Type: Spontaneous
  Country: US (occurrence: US)
  Receive Date: 20190517
  Receipt Date: 20190517
  Transmission Date: 20190711
  Serious: No
  Sender: FDA-Public Use
  Company Number: None

PATIENT
  Sex: Female

DRUGS (1)
  1. ENTYVIO [Suspect]
     Active Substance: VEDOLIZUMAB
     Indication: GASTROENTERITIS
     Dosage: 300MG EVERY 8 WEEKS INTRAVENOUSLY
     Route: 042
     Dates: start: 20180912

REACTIONS (2)
  - Dizziness [None]
  - Balance disorder [None]
